FAERS Safety Report 20992204 (Version 1)
Quarter: 2022Q2

REPORT INFORMATION
  Report Type: Spontaneous
  Country: US (occurrence: None)
  Receive Date: 20220621
  Receipt Date: 20220621
  Transmission Date: 20220721
  Serious: Yes (Hospitalization)
  Sender: FDA-Public Use
  Company Number: None

PATIENT
  Age: 81 Year
  Sex: Female
  Weight: 52.48 kg

DRUGS (9)
  1. IMATINIB [Suspect]
     Active Substance: IMATINIB
     Indication: Chronic myeloid leukaemia
     Dosage: FREQUENCY : DAILY;?
     Route: 048
  2. CARVEDILOL [Concomitant]
     Active Substance: CARVEDILOL
  3. CYANOCOBALAMIN [Concomitant]
     Active Substance: CYANOCOBALAMIN
  4. PEPPERMINT OIL [Concomitant]
     Active Substance: PEPPERMINT OIL
  5. LORAZEPAM [Concomitant]
     Active Substance: LORAZEPAM
  6. LOSARTAN [Concomitant]
     Active Substance: LOSARTAN
  7. VITAMINS [Concomitant]
     Active Substance: VITAMINS
  8. OMEPRAZOLE [Concomitant]
     Active Substance: OMEPRAZOLE
  9. ONDANSETRON [Concomitant]
     Active Substance: ONDANSETRON

REACTIONS (1)
  - Hospitalisation [None]
